FAERS Safety Report 6796260-2 (Version None)
Quarter: 2010Q2

REPORT INFORMATION
  Report Type: 
  Country: None (occurrence: None)
  Receive Date: 20100625
  Receipt Date: 20100617
  Transmission Date: 20101027
  Serious: Yes (Other)
  Sender: FDA-Public Use
  Company Number: JP-AMGEN-QUU418721

PATIENT
  Age: 51 Year
  Sex: Female
  Weight: 60 kg

DRUGS (7)
  1. ENBREL [Suspect]
     Indication: RHEUMATOID ARTHRITIS
     Route: 058
     Dates: start: 20100428, end: 20100507
  2. RHEUMATREX [Concomitant]
     Route: 048
  3. ISONIAZID [Concomitant]
     Route: 048
  4. LEUCOVORIN CALCIUM [Concomitant]
     Route: 048
  5. OMEPRAZOLE [Concomitant]
     Route: 048
  6. SALAZOSULFAPYRIDINE [Concomitant]
     Route: 048
  7. LOXOPROFEN SODIUM [Concomitant]
     Route: 048

REACTIONS (6)
  - BLISTER [None]
  - ERYTHEMA [None]
  - PAIN [None]
  - PRURITUS [None]
  - PYREXIA [None]
  - STEVENS-JOHNSON SYNDROME [None]
